FAERS Safety Report 5596032-0 (Version None)
Quarter: 2007Q4

REPORT INFORMATION
  Report Type: 
  Country: None (occurrence: None)
  Receive Date: 20071218
  Receipt Date: 20070123
  Transmission Date: 20080405
  Serious: Yes (Hospitalization, Other)
  Sender: FDA-Public Use
  Company Number: 2006114484

PATIENT
  Age: 60 Year
  Sex: Male
  Weight: 81.6 kg

DRUGS (4)
  1. BEXTRA [Suspect]
     Indication: ARTHRITIS
     Dosage: 20 MG (20 MG,  IN 1 D), ORAL
     Route: 048
     Dates: start: 20020301
  2. BEXTRA [Suspect]
     Indication: FIBROMYALGIA
     Dosage: 20 MG (20 MG,  IN 1 D), ORAL
     Route: 048
     Dates: start: 20020301
  3. BEXTRA [Suspect]
     Indication: INFLAMMATION
     Dosage: 20 MG (20 MG,  IN 1 D), ORAL
     Route: 048
     Dates: start: 20020301
  4. BEXTRA [Suspect]
     Indication: PAIN
     Dosage: 20 MG (20 MG,  IN 1 D), ORAL
     Route: 048
     Dates: start: 20020301

REACTIONS (2)
  - DEPRESSION [None]
  - MYOCARDIAL INFARCTION [None]
